FAERS Safety Report 7462681-8 (Version None)
Quarter: 2011Q2

REPORT INFORMATION
  Report Type: 
  Country: None (occurrence: None)
  Receive Date: 20110506
  Receipt Date: 20110207
  Transmission Date: 20111010
  Serious: Yes (Hospitalization, Other)
  Sender: FDA-Public Use
  Company Number: US-BAYER-201016719NA

PATIENT
  Age: 75 Year
  Sex: Male
  Weight: 92.063 kg

DRUGS (31)
  1. CALCIUM CHLORIDE [Concomitant]
     Indication: PRODUCT USED FOR UNKNOWN INDICATION
     Dosage: 2 G, UNK
     Route: 042
     Dates: start: 20060421, end: 20060421
  2. FORANE [Concomitant]
     Indication: PRODUCT USED FOR UNKNOWN INDICATION
     Dosage: UNK
     Dates: start: 20060421, end: 20060421
  3. TRASYLOL [Suspect]
     Indication: CORONARY ARTERY BYPASS
  4. EPINEPHRINE [Concomitant]
     Indication: PRODUCT USED FOR UNKNOWN INDICATION
     Dosage: UNK
     Route: 042
     Dates: start: 20060421
  5. TRASYLOL [Suspect]
     Indication: AORTIC VALVE REPLACEMENT
     Dosage: 100 ML, ONCE
     Route: 042
     Dates: start: 20060421, end: 20060421
  6. TRASYLOL [Suspect]
     Indication: MITRAL VALVE REPAIR
     Dosage: 25 CC/HOUR
     Route: 042
     Dates: start: 20060421, end: 20060421
  7. LOPRESSOR [Concomitant]
     Indication: PRODUCT USED FOR UNKNOWN INDICATION
     Dosage: 50 MG, UNK
     Route: 048
     Dates: start: 20060415
  8. HEPARIN [Concomitant]
     Indication: PRODUCT USED FOR UNKNOWN INDICATION
     Dosage: 5000 U, UNK
     Route: 042
     Dates: start: 20060415
  9. FLOLAN [Concomitant]
     Indication: PRODUCT USED FOR UNKNOWN INDICATION
     Dosage: 100 MG, ONCE
     Route: 042
     Dates: start: 20060421
  10. ACETYLSALICYLIC ACID SRT [Concomitant]
     Dosage: 81 MG, QD
     Route: 048
  11. COZAAR [Concomitant]
     Indication: PRODUCT USED FOR UNKNOWN INDICATION
     Dosage: 50 MG, QD
     Route: 048
  12. PAPAVERINE [PAPAVERINE] [Concomitant]
     Indication: PRODUCT USED FOR UNKNOWN INDICATION
     Dosage: 60 MG, UNK
     Route: 042
     Dates: start: 20060421, end: 20060421
  13. SOLU-CORTEF [Concomitant]
     Indication: PRODUCT USED FOR UNKNOWN INDICATION
     Dosage: 100 MG, UNK
     Route: 042
     Dates: start: 20060421, end: 20060421
  14. HEPARIN [Concomitant]
     Dosage: 10000 U, UNK
     Route: 042
     Dates: start: 20060421, end: 20060421
  15. SODIUM BICARBONATE [Concomitant]
     Indication: PRODUCT USED FOR UNKNOWN INDICATION
     Dosage: 50 MEQ, UNK
     Route: 042
     Dates: start: 20060421, end: 20060421
  16. FENTANYL [Concomitant]
     Indication: PRODUCT USED FOR UNKNOWN INDICATION
     Dosage: UNK
     Route: 042
     Dates: start: 20060421, end: 20060421
  17. ALBUMIN (HUMAN) [Concomitant]
     Indication: PRODUCT USED FOR UNKNOWN INDICATION
     Dosage: 32 ML, UNK
     Route: 042
     Dates: start: 20060421, end: 20060421
  18. PLASMALYTE [GLUCOSE,POTASSIUM CHLORIDE] [Concomitant]
     Indication: PRODUCT USED FOR UNKNOWN INDICATION
     Dosage: 1800 ML, UNK
     Route: 042
     Dates: start: 20060421, end: 20060421
  19. MANNITOL [Concomitant]
     Indication: PRODUCT USED FOR UNKNOWN INDICATION
     Dosage: UNK
     Route: 042
     Dates: start: 20060421, end: 20060421
  20. LASIX [Concomitant]
     Indication: PRODUCT USED FOR UNKNOWN INDICATION
     Dosage: 100 MG, UNK
     Route: 042
     Dates: start: 20060421, end: 20060421
  21. MILRINONE [Concomitant]
     Indication: PRODUCT USED FOR UNKNOWN INDICATION
     Dosage: UNK
     Route: 042
     Dates: start: 20060421, end: 20060421
  22. INS [INSULIN] [Concomitant]
     Indication: PRODUCT USED FOR UNKNOWN INDICATION
     Dosage: 5 U, UNK
     Route: 042
     Dates: start: 20060421, end: 20060421
  23. FLOLAN [Concomitant]
     Dosage: 6 ML, Q1HR
     Route: 042
     Dates: start: 20060421
  24. LEVOPHED [Concomitant]
     Indication: PRODUCT USED FOR UNKNOWN INDICATION
     Dosage: UNK
     Route: 042
     Dates: start: 20060421
  25. MUCOMYST [Concomitant]
     Indication: PRODUCT USED FOR UNKNOWN INDICATION
     Dosage: UNK
     Dates: start: 20060417
  26. LIDOCAINE [Concomitant]
     Indication: PRODUCT USED FOR UNKNOWN INDICATION
     Dosage: 100 MEQ, UNK
     Route: 042
     Dates: start: 20060421, end: 20060421
  27. DDAVP [Concomitant]
     Indication: PRODUCT USED FOR UNKNOWN INDICATION
     Dosage: 25 ?G, UNK
     Route: 042
     Dates: start: 20060421, end: 20060421
  28. VASOPRESSIN [Concomitant]
     Indication: PRODUCT USED FOR UNKNOWN INDICATION
     Dosage: 15 ML, Q1HR
     Route: 042
     Dates: start: 20060421
  29. PROTAMINE SULFATE [Concomitant]
     Indication: PRODUCT USED FOR UNKNOWN INDICATION
     Dosage: 20 MG, UNK
     Route: 042
     Dates: start: 20060421, end: 20060421
  30. VISIPAQUE [Concomitant]
     Indication: PRODUCT USED FOR UNKNOWN INDICATION
     Dosage: 36 ML, UNK
     Dates: start: 20060418
  31. VISIPAQUE [Concomitant]
     Dosage: 125 CC
     Dates: start: 20060510

REACTIONS (10)
  - INJURY [None]
  - UNEVALUABLE EVENT [None]
  - FEAR [None]
  - RENAL FAILURE [None]
  - STRESS [None]
  - RENAL INJURY [None]
  - ANXIETY [None]
  - ANHEDONIA [None]
  - PAIN [None]
  - RENAL IMPAIRMENT [None]
